FAERS Safety Report 15669965 (Version 1)
Quarter: 2018Q4

REPORT INFORMATION
  Report Type: Report from Study
  Country: US (occurrence: US)
  Receive Date: 20181129
  Receipt Date: 20181129
  Transmission Date: 20190205
  Serious: No
  Sender: FDA-Public Use
  Company Number: PHEH2018US048595

PATIENT
  Sex: Female

DRUGS (2)
  1. FEMARA [Suspect]
     Active Substance: LETROZOLE
     Indication: PRODUCT USED FOR UNKNOWN INDICATION
     Route: 048
  2. KISQALI [Suspect]
     Active Substance: RIBOCICLIB
     Indication: PRODUCT USED FOR UNKNOWN INDICATION
     Route: 048

REACTIONS (9)
  - Eructation [Unknown]
  - Retching [Unknown]
  - Asthenia [Unknown]
  - Cognitive disorder [Unknown]
  - Fatigue [Unknown]
  - White blood cell count decreased [Unknown]
  - Feeding disorder [Unknown]
  - Nausea [Unknown]
  - Dysgeusia [Unknown]
